FAERS Safety Report 24316076 (Version 1)
Quarter: 2024Q3

REPORT INFORMATION
  Report Type: Spontaneous
  Country: AU (occurrence: AU)
  Receive Date: 20240913
  Receipt Date: 20240913
  Transmission Date: 20241017
  Serious: Yes (Other)
  Sender: RANBAXY
  Company Number: AU-SUN PHARMACEUTICAL INDUSTRIES LTD-2024R1-466376

PATIENT
  Age: 43 Year
  Sex: Female

DRUGS (1)
  1. OLANZAPINE [Suspect]
     Active Substance: OLANZAPINE
     Indication: Product used for unknown indication
     Dosage: UNK
     Route: 048
     Dates: start: 201904, end: 20210315

REACTIONS (9)
  - Faecaloma [Unknown]
  - Loss of consciousness [Recovered/Resolved]
  - Urinary retention [Unknown]
  - Weight decreased [Unknown]
  - Dehydration [Unknown]
  - Dizziness [Unknown]
  - Dry mouth [Unknown]
  - Dyspnoea [Unknown]
  - Vision blurred [Unknown]

NARRATIVE: CASE EVENT DATE: 20200301
